FAERS Safety Report 4716007-0 (Version None)
Quarter: 2005Q3

REPORT INFORMATION
  Report Type: 
  Country: None (occurrence: None)
  Receive Date: 20050718
  Receipt Date: 20050706
  Transmission Date: 20060218
  Serious: Yes (Hospitalization)
  Sender: FDA-Public Use
  Company Number: FR-GLAXOSMITHKLINE-B0387038A

PATIENT
  Age: 27 Year
  Sex: Female

DRUGS (8)
  1. EPIVIR [Suspect]
     Indication: HIV INFECTION
     Dosage: 1TAB PER DAY
     Route: 048
     Dates: start: 20020902
  2. COVERSYL [Suspect]
     Dosage: 2MG PER DAY
     Route: 048
     Dates: start: 20030101
  3. VIRACEPT [Suspect]
     Indication: HIV INFECTION
     Dosage: 1250MG TWICE PER DAY
     Route: 048
     Dates: start: 20020809
  4. SUSTIVA [Suspect]
     Indication: HIV INFECTION
     Dosage: 600MG PER DAY
     Route: 048
     Dates: start: 20020808
  5. NITRIDERM 5 MG [Concomitant]
     Dosage: 1TAB PER DAY
     Route: 048
     Dates: start: 20050101
  6. UN-ALPHA [Concomitant]
     Dosage: .25U PER DAY
     Route: 065
  7. AMLODIPINE BESYLATE [Concomitant]
     Dosage: 10MG PER DAY
     Route: 065
  8. LASIX [Concomitant]
     Dosage: 125MG PER DAY
     Route: 065

REACTIONS (14)
  - ACUTE PULMONARY OEDEMA [None]
  - CARDIAC MURMUR [None]
  - CARDIOMEGALY [None]
  - DYSPNOEA [None]
  - HAEMOPTYSIS [None]
  - HEPATIC PAIN [None]
  - MITRAL VALVE INCOMPETENCE [None]
  - MYOCARDITIS [None]
  - PLEURAL EFFUSION [None]
  - PULMONARY HYPERTENSION [None]
  - SENSE OF OPPRESSION [None]
  - SPLENOMEGALY [None]
  - TACHYCARDIA [None]
  - TRANSAMINASES INCREASED [None]
